FAERS Safety Report 20366889 (Version 1)
Quarter: 2022Q1

REPORT INFORMATION
  Report Type: Other
  Country: US (occurrence: US)
  Receive Date: 20220123
  Receipt Date: 20220123
  Transmission Date: 20220424
  Serious: No
  Sender: FDA-Public Use
  Company Number: US-ACORDA-ACO_171141_2021

PATIENT
  Sex: Female

DRUGS (1)
  1. AMPYRA [Suspect]
     Active Substance: DALFAMPRIDINE
     Indication: Product used for unknown indication
     Dosage: 10 MILLIGRAM, BID
     Route: 065
     Dates: start: 20210827

REACTIONS (8)
  - Erythema [Unknown]
  - Flushing [Unknown]
  - Dystonia [Unknown]
  - Sleep disorder due to a general medical condition [Unknown]
  - Aphasia [Unknown]
  - Peripheral swelling [Unknown]
  - Gait disturbance [Unknown]
  - Paraesthesia [Unknown]
